FAERS Safety Report 18554080 (Version 1)
Quarter: 2020Q4

REPORT INFORMATION
  Report Type: Spontaneous
  Country: GB (occurrence: GB)
  Receive Date: 20201127
  Receipt Date: 20201127
  Transmission Date: 20210114
  Serious: Yes (Other)
  Sender: FDA-Public Use
  Company Number: GB-009507513-2011GBR010381

PATIENT
  Age: 40 Year
  Sex: Female
  Weight: 119.74 kg

DRUGS (3)
  1. SERETIDE [Concomitant]
     Active Substance: FLUTICASONE PROPIONATE\SALMETEROL XINAFOATE
  2. LISINOPRIL. [Suspect]
     Active Substance: LISINOPRIL
     Indication: HYPERTENSION
     Dosage: 2.5 MILLIGRAM
     Route: 048
     Dates: start: 20160409, end: 20160417
  3. ALBUTEROL. [Concomitant]
     Active Substance: ALBUTEROL

REACTIONS (8)
  - Peripheral swelling [Not Recovered/Not Resolved]
  - Headache [Not Recovered/Not Resolved]
  - Skin reaction [Unknown]
  - Urticaria [Not Recovered/Not Resolved]
  - Pyrexia [Not Recovered/Not Resolved]
  - Pain [Not Recovered/Not Resolved]
  - Vaginal haemorrhage [Unknown]
  - Pruritus genital [Recovering/Resolving]

NARRATIVE: CASE EVENT DATE: 20160416
